FAERS Safety Report 13372949 (Version 1)
Quarter: 2017Q1

REPORT INFORMATION
  Report Type: Report from Study
  Country: US (occurrence: US)
  Receive Date: 20170327
  Receipt Date: 20170327
  Transmission Date: 20170429
  Serious: Yes (Hospitalization)
  Sender: FDA-Public Use
  Company Number: US-JNJFOC-20160919095

PATIENT
  Age: 63 Year
  Sex: Male

DRUGS (6)
  1. IMBRUVICA [Suspect]
     Active Substance: IBRUTINIB
     Indication: CHRONIC LYMPHOCYTIC LEUKAEMIA
     Route: 048
     Dates: start: 20160830, end: 20160911
  2. IMBRUVICA [Suspect]
     Active Substance: IBRUTINIB
     Indication: CHRONIC LYMPHOCYTIC LEUKAEMIA
     Route: 048
     Dates: start: 2016
  3. AMITIZA [Concomitant]
     Active Substance: LUBIPROSTONE
  4. IMBRUVICA [Suspect]
     Active Substance: IBRUTINIB
     Indication: CHRONIC LYMPHOCYTIC LEUKAEMIA
     Route: 048
     Dates: start: 20160629
  5. ALDACTONE [Concomitant]
     Active Substance: SPIRONOLACTONE
  6. CONSTULOSE [Concomitant]
     Active Substance: LACTULOSE

REACTIONS (9)
  - Weight increased [Unknown]
  - Fall [Unknown]
  - Clostridium difficile infection [Unknown]
  - Off label use [Not Recovered/Not Resolved]
  - Asthenia [Not Recovered/Not Resolved]
  - Peripheral swelling [Unknown]
  - Joint swelling [Unknown]
  - Incorrect dose administered [Not Recovered/Not Resolved]
  - Pneumonia [Not Recovered/Not Resolved]

NARRATIVE: CASE EVENT DATE: 20160629
